FAERS Safety Report 25360326 (Version 1)
Quarter: 2025Q2

REPORT INFORMATION
  Report Type: Spontaneous
  Country: US (occurrence: US)
  Receive Date: 20250527
  Receipt Date: 20250527
  Transmission Date: 20250717
  Serious: No
  Sender: VIIV
  Company Number: US-VIIV HEALTHCARE-US2025060655

PATIENT
  Sex: Male

DRUGS (1)
  1. VOCABRIA [Suspect]
     Active Substance: CABOTEGRAVIR SODIUM
     Indication: Prophylaxis against HIV infection
     Dates: start: 202504, end: 202505

REACTIONS (1)
  - Nausea [Recovered/Resolved]
